FAERS Safety Report 23262306 (Version 7)
Quarter: 2024Q3

REPORT INFORMATION
  Report Type: Report from Study
  Country: CO (occurrence: CO)
  Receive Date: 20231205
  Receipt Date: 20240816
  Transmission Date: 20241016
  Serious: Yes (Other)
  Sender: TAKEDA
  Company Number: CO-TAKEDA-2023TUS116058

PATIENT
  Age: 71 Year
  Sex: Male
  Weight: 81 kg

DRUGS (1)
  1. VEDOLIZUMAB [Suspect]
     Active Substance: VEDOLIZUMAB
     Indication: Colitis ulcerative
     Dosage: 300 MILLIGRAM
     Route: 058
     Dates: start: 20231117

REACTIONS (15)
  - Suicidal ideation [Unknown]
  - Colitis ulcerative [Not Recovered/Not Resolved]
  - Fear [Unknown]
  - Anxiety [Unknown]
  - Food aversion [Unknown]
  - Weight decreased [Unknown]
  - Mobility decreased [Unknown]
  - Depression [Unknown]
  - Mucous stools [Unknown]
  - Anal incontinence [Unknown]
  - Diarrhoea [Unknown]
  - Faeces hard [Unknown]
  - Abdominal pain [Unknown]
  - Decreased appetite [Unknown]
  - Flatulence [Unknown]

NARRATIVE: CASE EVENT DATE: 20240319
